FAERS Safety Report 21186439 (Version 4)
Quarter: 2024Q2

REPORT INFORMATION
  Report Type: Spontaneous
  Country: US (occurrence: US)
  Receive Date: 20220808
  Receipt Date: 20240424
  Transmission Date: 20240716
  Serious: Yes (Other)
  Sender: FDA-Public Use
  Company Number: US-ELI_LILLY_AND_COMPANY-US202207012678

PATIENT
  Age: 58 Year
  Sex: Male

DRUGS (5)
  1. HUMALOG [Suspect]
     Active Substance: INSULIN LISPRO
     Indication: Product used for unknown indication
     Dosage: 22 U, TID
     Route: 065
  2. HUMALOG [Suspect]
     Active Substance: INSULIN LISPRO
     Indication: Product used for unknown indication
     Dosage: 22 U, TID
     Route: 065
  3. HUMALOG [Suspect]
     Active Substance: INSULIN LISPRO
     Dosage: 22 U, TID
     Route: 065
  4. HUMALOG [Suspect]
     Active Substance: INSULIN LISPRO
     Dosage: 22 U, TID
     Route: 065
  5. LANTUS [Concomitant]
     Active Substance: INSULIN GLARGINE
     Indication: Product used for unknown indication

REACTIONS (5)
  - Rotator cuff syndrome [Unknown]
  - Fungal infection [Unknown]
  - Blood glucose increased [Unknown]
  - Wrong patient received product [Unknown]
  - Arthralgia [Unknown]
